FAERS Safety Report 5250455-8 (Version None)
Quarter: 2007Q1

REPORT INFORMATION
  Report Type: 
  Country: None (occurrence: None)
  Receive Date: 20070228
  Receipt Date: 20060504
  Transmission Date: 20070707
  Serious: Yes (Hospitalization)
  Sender: FDA-Public Use
  Company Number: US-GLAXOSMITHKLINE-A0602199A

PATIENT
  Age: 40 Year
  Sex: Male
  Weight: 95.5 kg

DRUGS (1)
  1. LAMICTAL [Suspect]
     Indication: DRUG USE FOR UNKNOWN INDICATION
     Route: 048
     Dates: start: 20060321, end: 20060404

REACTIONS (2)
  - LIP SWELLING [None]
  - RASH [None]
